FAERS Safety Report 6803970-7 (Version None)
Quarter: 2010Q2

REPORT INFORMATION
  Report Type: 
  Country: None (occurrence: None)
  Receive Date: 20100628
  Receipt Date: 20060531
  Transmission Date: 20101027
  Serious: Yes (Hospitalization, Other)
  Sender: FDA-Public Use
  Company Number: US-PFIZER INC-2006058757

PATIENT
  Sex: Female
  Weight: 128.37 kg

DRUGS (6)
  1. SUTENT [Suspect]
     Indication: RENAL CANCER METASTATIC
     Route: 048
     Dates: start: 20060322
  2. METFORMIN HCL [Concomitant]
     Route: 065
     Dates: start: 20040101
  3. SYNTHROID [Concomitant]
     Route: 065
     Dates: start: 20040101
  4. AVAPRO [Concomitant]
     Route: 065
     Dates: start: 20050301
  5. CORGARD [Concomitant]
     Route: 065
     Dates: start: 20050301
  6. STARLIX [Concomitant]
     Route: 065
     Dates: start: 20060311

REACTIONS (1)
  - INTESTINAL PERFORATION [None]
